FAERS Safety Report 17224864 (Version 2)
Quarter: 2020Q1

REPORT INFORMATION
  Report Type: Report from Study
  Country: FR (occurrence: FR)
  Receive Date: 20200102
  Receipt Date: 20200330
  Transmission Date: 20200409
  Serious: Yes (Death)
  Sender: FDA-Public Use
  Company Number: NVSC2019FR084255

PATIENT
  Age: 59 Year
  Sex: Male
  Weight: 86 kg

DRUGS (2)
  1. VINCRISTINE [Suspect]
     Active Substance: VINCRISTINE
     Indication: ACUTE LYMPHOCYTIC LEUKAEMIA
     Dosage: 2 MG
     Route: 042
     Dates: start: 20191224
  2. NILOTINIB [Suspect]
     Active Substance: NILOTINIB
     Indication: ACUTE LYMPHOCYTIC LEUKAEMIA
     Dosage: 600 MG, PER OS
     Route: 048
     Dates: start: 20191224

REACTIONS (1)
  - Sudden death [Fatal]

NARRATIVE: CASE EVENT DATE: 20191224
